FAERS Safety Report 22207677 (Version 5)
Quarter: 2023Q2

REPORT INFORMATION
  Report Type: Spontaneous
  Country: US (occurrence: US)
  Receive Date: 20230413
  Receipt Date: 20230626
  Transmission Date: 20230722
  Serious: No
  Sender: FDA-Public Use
  Company Number: US-PFIZER INC-202300144416

PATIENT
  Age: 10 Year
  Sex: Male

DRUGS (2)
  1. GENOTROPIN [Suspect]
     Active Substance: SOMATROPIN
     Dosage: SHOT DAILY IN ONE DAY OFF
  2. GENOTROPIN [Suspect]
     Active Substance: SOMATROPIN
     Dosage: 1.4MG, (6 DAYS A WEEK)

REACTIONS (3)
  - Incorrect dose administered by device [Unknown]
  - Poor quality device used [Unknown]
  - Device leakage [Unknown]
